FAERS Safety Report 7323709-9 (Version None)
Quarter: 2011Q1

REPORT INFORMATION
  Report Type: 
  Country: None (occurrence: None)
  Receive Date: 20110301
  Receipt Date: 20110215
  Transmission Date: 20110831
  Serious: Yes (Other)
  Sender: FDA-Public Use
  Company Number: PHHY2011US13409

PATIENT
  Sex: Female

DRUGS (1)
  1. TASIGNA [Suspect]
     Dosage: 200 MG, UNK
     Route: 048

REACTIONS (4)
  - HYPOAESTHESIA ORAL [None]
  - BLOOD ARSENIC INCREASED [None]
  - AGEUSIA [None]
  - DYSGEUSIA [None]
